FAERS Safety Report 7425956-4 (Version None)
Quarter: 2011Q2

REPORT INFORMATION
  Report Type: 
  Country: None (occurrence: None)
  Receive Date: 20110420
  Receipt Date: 20110411
  Transmission Date: 20111010
  Serious: Yes (Other)
  Sender: FDA-Public Use
  Company Number: HR-ROCHE-770966

PATIENT
  Age: 55 Year
  Sex: Male

DRUGS (4)
  1. LEUCOVORIN [Concomitant]
     Dates: start: 20080222, end: 20090318
  2. FLUOROURACIL [Concomitant]
     Dates: start: 20080222, end: 20090318
  3. BEVACIZUMAB [Suspect]
     Route: 042
     Dates: start: 20080222, end: 20090318
  4. IRINOTECAN [Concomitant]
     Dates: start: 20080222, end: 20090318

REACTIONS (1)
  - ATRIAL FIBRILLATION [None]
